FAERS Safety Report 7598315-1 (Version None)
Quarter: 2011Q3

REPORT INFORMATION
  Report Type: 
  Country: None (occurrence: None)
  Receive Date: 20110708
  Receipt Date: 20110623
  Transmission Date: 20111222
  Serious: Yes (Other)
  Sender: FDA-Public Use
  Company Number: GB-WATSON-2011-10155

PATIENT
  Age: 26 Year
  Sex: Female
  Weight: 67.2 kg

DRUGS (2)
  1. YASMIN [Concomitant]
     Indication: PRODUCT USED FOR UNKNOWN INDICATION
     Dosage: UNK
     Route: 065
     Dates: start: 20110214
  2. OMEPRAZOLE [Suspect]
     Indication: PRODUCT USED FOR UNKNOWN INDICATION
     Dosage: UNK
     Route: 065
     Dates: start: 20110609

REACTIONS (4)
  - NAUSEA [None]
  - ASTHENIA [None]
  - FEELING ABNORMAL [None]
  - DIZZINESS [None]
